FAERS Safety Report 8078129-9 (Version None)
Quarter: 2012Q1

REPORT INFORMATION
  Report Type: 
  Country: None (occurrence: None)
  Receive Date: 20120127
  Receipt Date: 20110308
  Transmission Date: 20120608
  Serious: No
  Sender: FDA-Public Use
  Company Number: US-ABBOTT-10P-163-0686418-00

PATIENT
  Age: 33 Year
  Sex: Female

DRUGS (9)
  1. METHADONE HCL [Concomitant]
     Indication: PAIN
  2. NAPROSYN [Concomitant]
     Indication: ARTHRALGIA
  3. HUMIRA [Suspect]
     Indication: CROHN'S DISEASE
     Dates: start: 20100909, end: 20110201
  4. HUMIRA [Suspect]
  5. PROZAC [Concomitant]
     Indication: DEPRESSION
  6. BACLOFEN [Concomitant]
     Indication: MUSCLE RELAXANT THERAPY
  7. AMBIEN [Concomitant]
     Indication: INSOMNIA
  8. PHENERGAN [Concomitant]
     Indication: NAUSEA
  9. NEXIUM [Concomitant]
     Indication: GASTROOESOPHAGEAL REFLUX DISEASE

REACTIONS (8)
  - POLYMENORRHOEA [None]
  - OEDEMA PERIPHERAL [None]
  - PAIN [None]
  - ABDOMINAL PAIN [None]
  - ABDOMINAL DISTENSION [None]
  - AMENORRHOEA [None]
  - DRUG INEFFECTIVE [None]
  - JOINT SWELLING [None]
